FAERS Safety Report 10451247 (Version 2)
Quarter: 2014Q4

REPORT INFORMATION
  Report Type: Spontaneous
  Country: US (occurrence: US)
  Receive Date: 20140912
  Receipt Date: 20141218
  Transmission Date: 20150528
  Serious: No
  Sender: FDA-Public Use
  Company Number: US-GALDERMA-US14003089

PATIENT
  Age: 40 Year
  Sex: Female

DRUGS (6)
  1. MIRVASO [Suspect]
     Active Substance: BRIMONIDINE TARTRATE
     Indication: ROSACEA
     Dosage: 0.33%
     Route: 061
     Dates: start: 20140816, end: 20140817
  2. TEA TREE SOAP [Concomitant]
     Indication: THERAPEUTIC SKIN CARE TOPICAL
     Route: 061
     Dates: start: 2013
  3. CLONIDINE HCL [Concomitant]
     Active Substance: CLONIDINE HYDROCHLORIDE
     Dosage: 0.1 MG
     Route: 048
  4. FOLIC ACID. [Concomitant]
     Active Substance: FOLIC ACID
     Route: 048
  5. JAFRA SUNSCREEN SPF 40 [Concomitant]
     Indication: PROPHYLAXIS AGAINST SOLAR RADIATION
     Route: 061
     Dates: start: 2013
  6. IRON [Concomitant]
     Active Substance: IRON
     Dosage: 65 MG
     Route: 048

REACTIONS (6)
  - Drug ineffective for unapproved indication [Recovered/Resolved]
  - Skin exfoliation [Recovered/Resolved]
  - Skin burning sensation [Recovered/Resolved]
  - Product use issue [Recovered/Resolved]
  - Dry skin [Recovered/Resolved]
  - Pruritus [Recovered/Resolved]

NARRATIVE: CASE EVENT DATE: 20140816
